FAERS Safety Report 7916016-4 (Version None)
Quarter: 2011Q4

REPORT INFORMATION
  Report Type: 
  Country: None (occurrence: None)
  Receive Date: 20111115
  Receipt Date: 20111107
  Transmission Date: 20120403
  Serious: Yes (Hospitalization, Other)
  Sender: FDA-Public Use
  Company Number: US-ASTRAZENECA-2011SE07873

PATIENT
  Age: 57 Year
  Sex: Male
  Weight: 108.9 kg

DRUGS (10)
  1. NITROGLYCERIN [Concomitant]
     Indication: CARDIOVASCULAR EVENT PROPHYLAXIS
  2. LAMICTAL [Concomitant]
     Indication: BIPOLAR DISORDER
  3. SIMVASTATIN [Concomitant]
     Indication: CARDIOVASCULAR EVENT PROPHYLAXIS
  4. SEROQUEL [Suspect]
     Indication: BIPOLAR DISORDER
     Dosage: 1 TABLET AM AND 2 TABLETS HS (300 MG AND 600 MG)
     Route: 048
  5. METOPROLOL SUCCINATE [Suspect]
     Indication: CARDIOVASCULAR EVENT PROPHYLAXIS
  6. TRILEPTAL [Concomitant]
     Indication: BIPOLAR DISORDER
     Dosage: 600 MG TWO TIMES A DAY
  7. PLAVIX [Concomitant]
     Indication: CARDIOVASCULAR EVENT PROPHYLAXIS
  8. PREDNISONE [Concomitant]
  9. CYMBALTA [Concomitant]
     Indication: BIPOLAR DISORDER
  10. MIRAPEX [Concomitant]
     Indication: BIPOLAR DISORDER

REACTIONS (5)
  - INSOMNIA [None]
  - MYOCARDIAL INFARCTION [None]
  - SUICIDAL IDEATION [None]
  - DRUG DOSE OMISSION [None]
  - VIITH NERVE PARALYSIS [None]
